FAERS Safety Report 5194673-6 (Version None)
Quarter: 2006Q4

REPORT INFORMATION
  Report Type: 
  Country: None (occurrence: None)
  Receive Date: 20061229
  Receipt Date: 20061205
  Transmission Date: 20070319
  Serious: Yes (Hospitalization)
  Sender: FDA-Public Use
  Company Number: PHNU2006DE04079

PATIENT
  Age: 42 Year
  Sex: Female

DRUGS (2)
  1. VOLTAREN [Suspect]
     Indication: ARTHRITIS
     Route: 048
     Dates: start: 20061101
  2. DICLOFENAC SODIUM [Suspect]
     Dates: start: 20061031

REACTIONS (3)
  - HAEMATOMA [None]
  - HAEMOGLOBIN DECREASED [None]
  - SKIN HAEMORRHAGE [None]
